FAERS Safety Report 8069406-6 (Version None)
Quarter: 2012Q1

REPORT INFORMATION
  Report Type: 
  Country: None (occurrence: None)
  Receive Date: 20120119
  Receipt Date: 20120105
  Transmission Date: 20120608
  Serious: Yes (Other)
  Sender: FDA-Public Use
  Company Number: JPI-P-019178

PATIENT
  Age: 54 Year
  Sex: Female
  Weight: 102.0593 kg

DRUGS (14)
  1. PREGABALIN [Concomitant]
  2. INSULIN ASPART AND INSULIN ASPART PROTAMINE [Concomitant]
  3. XYREM [Suspect]
     Indication: NARCOLEPSY
     Dosage: 4.5 GM (2.25 GM, 2 IN 1 D), ORAL, (UNKNOWN), ORAL, 7 GM (3.5 GM, 2 IN 1 D), ORAL, 7 GM (3.5 GM, 2 IN
     Route: 048
     Dates: end: 20120101
  4. XYREM [Suspect]
     Indication: SOMNOLENCE
     Dosage: 4.5 GM (2.25 GM, 2 IN 1 D), ORAL, (UNKNOWN), ORAL, 7 GM (3.5 GM, 2 IN 1 D), ORAL, 7 GM (3.5 GM, 2 IN
     Route: 048
     Dates: end: 20120101
  5. XYREM [Suspect]
     Indication: NARCOLEPSY
     Dosage: 4.5 GM (2.25 GM, 2 IN 1 D), ORAL, (UNKNOWN), ORAL, 7 GM (3.5 GM, 2 IN 1 D), ORAL, 7 GM (3.5 GM, 2 IN
     Route: 048
     Dates: start: 20120107
  6. XYREM [Suspect]
     Indication: SOMNOLENCE
     Dosage: 4.5 GM (2.25 GM, 2 IN 1 D), ORAL, (UNKNOWN), ORAL, 7 GM (3.5 GM, 2 IN 1 D), ORAL, 7 GM (3.5 GM, 2 IN
     Route: 048
     Dates: start: 20120107
  7. XYREM [Suspect]
     Indication: NARCOLEPSY
     Dosage: 4.5 GM (2.25 GM, 2 IN 1 D), ORAL, (UNKNOWN), ORAL, 7 GM (3.5 GM, 2 IN 1 D), ORAL, 7 GM (3.5 GM, 2 IN
     Route: 048
     Dates: start: 20111207
  8. XYREM [Suspect]
     Indication: SOMNOLENCE
     Dosage: 4.5 GM (2.25 GM, 2 IN 1 D), ORAL, (UNKNOWN), ORAL, 7 GM (3.5 GM, 2 IN 1 D), ORAL, 7 GM (3.5 GM, 2 IN
     Route: 048
     Dates: start: 20111207
  9. METFORMIN HCL [Concomitant]
  10. GEMFIBROZIL [Concomitant]
  11. DULOXETIME HYDROCHLORIDE [Concomitant]
  12. METOPROLOL TARTRATE [Concomitant]
  13. AMPHETAMINE, DEXTROAMPHETAMINE MIXED SALTS [Concomitant]
  14. LORATADINE [Concomitant]

REACTIONS (7)
  - MACULAR HOLE [None]
  - CONSTIPATION [None]
  - CONDITION AGGRAVATED [None]
  - INITIAL INSOMNIA [None]
  - POOR QUALITY SLEEP [None]
  - DRUG INEFFECTIVE [None]
  - CATARACT [None]
